FAERS Safety Report 6587971-2 (Version None)
Quarter: 2010Q1

REPORT INFORMATION
  Report Type: 
  Country: None (occurrence: None)
  Receive Date: 20100218
  Receipt Date: 20100216
  Transmission Date: 20100710
  Serious: Yes (Hospitalization)
  Sender: FDA-Public Use
  Company Number: KR-BRISTOL-MYERS SQUIBB COMPANY-14189674

PATIENT
  Age: 59 Year
  Sex: Male

DRUGS (8)
  1. CETUXIMAB [Suspect]
     Indication: COLORECTAL CANCER METASTATIC
     Dosage: DISCONTINUED ON 21SEP05
     Route: 041
     Dates: start: 20050716, end: 20050920
  2. PRAVASTATIN SODIUM [Suspect]
     Indication: HYPERTENSION
     Dates: start: 20030602, end: 20050926
  3. LISINOPRIL [Suspect]
     Indication: HYPERTENSION
     Dates: start: 20030602, end: 20050926
  4. IRINOTECAN HCL [Suspect]
     Indication: COLORECTAL CANCER METASTATIC
     Dosage: DISCONTINUED ON 21SEP05
     Route: 042
     Dates: start: 20050716, end: 20050913
  5. FOLINIC ACID [Suspect]
     Indication: COLORECTAL CANCER METASTATIC
     Dosage: DISCONTINUED ON 21SEP05
     Route: 042
     Dates: start: 20050716, end: 20050913
  6. FLUOROURACIL [Suspect]
     Indication: COLORECTAL CANCER METASTATIC
     Dosage: DISCONTINUED ON 21SEP05
     Route: 042
     Dates: start: 20050716, end: 20050913
  7. ASPIRIN [Suspect]
     Indication: PROPHYLAXIS
     Dates: start: 20030602, end: 20050926
  8. TENORMIN [Suspect]
     Indication: HYPERTENSION
     Dates: start: 20030602, end: 20050926

REACTIONS (1)
  - GASTRIC ULCER [None]
